FAERS Safety Report 12907041 (Version 2)
Quarter: 2016Q4

REPORT INFORMATION
  Report Type: Spontaneous
  Country: CA (occurrence: CA)
  Receive Date: 20161103
  Receipt Date: 20161114
  Transmission Date: 20170207
  Serious: Yes (Other)
  Sender: FDA-Public Use
  Company Number: CA-SA-2016SA033678

PATIENT
  Age: 65 Year
  Sex: Female

DRUGS (15)
  1. ARAVA [Suspect]
     Active Substance: LEFLUNOMIDE
     Indication: RHEUMATOID ARTHRITIS
     Route: 065
  2. SULFASALAZINE. [Suspect]
     Active Substance: SULFASALAZINE
     Indication: RHEUMATOID ARTHRITIS
     Route: 065
  3. ADALIMUMAB [Concomitant]
     Active Substance: ADALIMUMAB
  4. AMOXIL [Concomitant]
     Active Substance: AMOXICILLIN
  5. HUMIRA [Suspect]
     Active Substance: ADALIMUMAB
     Dosage: FORM-SOLUTION
     Route: 058
  6. APO-AZATHIOPRINE [Suspect]
     Active Substance: AZATHIOPRINE
     Route: 065
  7. GOLD [Concomitant]
     Active Substance: GOLD
  8. ENBREL [Suspect]
     Active Substance: ETANERCEPT
     Indication: RHEUMATOID ARTHRITIS
     Dosage: FORM-SOLUTION
     Route: 058
  9. RITUXAN [Suspect]
     Active Substance: RITUXIMAB
     Dosage: FORM-SOLUTION
     Route: 042
     Dates: end: 20160106
  10. MINOCYCLINE [Suspect]
     Active Substance: MINOCYCLINE\MINOCYCLINE HYDROCHLORIDE
     Indication: RHEUMATOID ARTHRITIS
     Route: 065
     Dates: start: 2006
  11. XELJANZ [Suspect]
     Active Substance: TOFACITINIB CITRATE
     Indication: RHEUMATOID ARTHRITIS
     Route: 065
  12. METHOTREXATE SODIUM. [Suspect]
     Active Substance: METHOTREXATE SODIUM
     Indication: RHEUMATOID ARTHRITIS
     Route: 058
  13. BCG VACCINE [Concomitant]
     Active Substance: BCG VACCINE
  14. PLAQUENIL [Suspect]
     Active Substance: HYDROXYCHLOROQUINE SULFATE
     Indication: RHEUMATOID ARTHRITIS
     Route: 065
  15. AMOXICILLIN TRIHYDRATE/CLAVULANATE POTASSIUM [Concomitant]

REACTIONS (4)
  - Unevaluable event [Unknown]
  - Drug ineffective [Unknown]
  - Drug intolerance [Unknown]
  - Non-Hodgkin^s lymphoma [Unknown]
